FAERS Safety Report 10731957 (Version 1)
Quarter: 2015Q1

REPORT INFORMATION
  Report Type: Spontaneous
  Country: US (occurrence: None)
  Receive Date: 20150120
  Receipt Date: 20150120
  Transmission Date: 20150721
  Serious: Yes (Death)
  Sender: FDA-Public Use
  Company Number: CIO15002255

PATIENT
  Sex: Male

DRUGS (1)
  1. PEPTO-BISMOL [Suspect]
     Active Substance: BISMUTH SUBSALICYLATE\CALCIUM CARBONATE
     Dosage: EVERY DAY FOR TOO LONG, ORAL
     Route: 048

REACTIONS (1)
  - Incorrect drug administration duration [None]
